FAERS Safety Report 24904256 (Version 6)
Quarter: 2025Q4

REPORT INFORMATION
  Report Type: Report from Study
  Country: US (occurrence: US)
  Receive Date: 20250130
  Receipt Date: 20251007
  Transmission Date: 20260117
  Serious: Yes (Other)
  Sender: SUNOVION
  Company Number: US-SMPA-2025SPA000617AA

PATIENT
  Age: 78 Year
  Sex: Male

DRUGS (1)
  1. ORGOVYX [Suspect]
     Active Substance: RELUGOLIX
     Indication: Prostate cancer
     Dosage: 120 MG, QD
     Route: 048
     Dates: start: 20250122

REACTIONS (7)
  - Disease progression [Unknown]
  - Dysuria [Recovered/Resolved]
  - Incontinence [Recovered/Resolved]
  - Alopecia [Unknown]
  - Erectile dysfunction [Not Recovered/Not Resolved]
  - Night sweats [Unknown]
  - Incorrect dose administered [Recovered/Resolved]
